FAERS Safety Report 5001054-4 (Version None)
Quarter: 2006Q2

REPORT INFORMATION
  Report Type: 
  Country: None (occurrence: None)
  Receive Date: 20060512
  Receipt Date: 20060502
  Transmission Date: 20061013
  Serious: Yes (Hospitalization)
  Sender: FDA-Public Use
  Company Number: 00206001265

PATIENT
  Age: 82 Year
  Sex: Male
  Weight: 79 kg

DRUGS (11)
  1. KREDEX [Suspect]
     Dosage: 25MG PER DAY
     Route: 065
  2. ADANCOR [Suspect]
     Indication: DRUG USE FOR UNKNOWN INDICATION
     Route: 065
  3. COVERSYL [Suspect]
     Indication: ANGINA PECTORIS
     Dosage: 2MG PER DAY
     Route: 065
     Dates: end: 20060218
  4. CORVASAL [Suspect]
     Dosage: 2MG PER DAY
     Route: 065
     Dates: end: 20060219
  5. PLAVIX [Concomitant]
  6. CORDARONE [Concomitant]
  7. NEXIUM [Concomitant]
  8. PERMIXON [Concomitant]
  9. MOVICOL [Concomitant]
  10. ACETAMINOPHEN [Concomitant]
  11. TARDYFERON [Concomitant]

REACTIONS (11)
  - ANOREXIA [None]
  - ASTHENIA [None]
  - DIZZINESS [None]
  - DRUG INTERACTION [None]
  - FALL [None]
  - GASTRIC CANCER [None]
  - GENERAL PHYSICAL HEALTH DETERIORATION [None]
  - HAEMATOMA [None]
  - ORTHOSTATIC HYPOTENSION [None]
  - VERTIGO [None]
  - WEIGHT DECREASED [None]
